FAERS Safety Report 8287174-X (Version None)
Quarter: 2012Q2

REPORT INFORMATION
  Report Type: 
  Country: None (occurrence: None)
  Receive Date: 20120416
  Receipt Date: 20120409
  Transmission Date: 20120825
  Serious: Yes (Other)
  Sender: FDA-Public Use
  Company Number: US-AMGEN-USASP2012022345

PATIENT
  Age: 50 Year
  Sex: Male

DRUGS (1)
  1. ENBREL [Suspect]
     Indication: RHEUMATOID ARTHRITIS
     Dosage: 50 MG, QWK
     Dates: start: 20120320

REACTIONS (8)
  - ANXIETY [None]
  - ORAL PAIN [None]
  - OEDEMA MOUTH [None]
  - STOMATITIS [None]
  - ENAMEL ANOMALY [None]
  - CHEST PAIN [None]
  - DEPRESSION [None]
  - TOOTH DISORDER [None]
